FAERS Safety Report 4786900-1 (Version None)
Quarter: 2005Q3

REPORT INFORMATION
  Report Type: 
  Country: None (occurrence: None)
  Receive Date: 20050930
  Receipt Date: 20050916
  Transmission Date: 20060218
  Serious: Yes (Death, Hospitalization)
  Sender: FDA-Public Use
  Company Number: COT_0203_2005

PATIENT
  Age: 52 Year
  Sex: Male
  Weight: 93 kg

DRUGS (9)
  1. VENTAVIS [Suspect]
     Indication: PULMONARY HYPERTENSION
     Dosage: 5 MCG VARIABLE IH
     Route: 055
     Dates: start: 20050823
  2. LASIX [Concomitant]
  3. TRACLEER [Concomitant]
  4. OXYGEN [Concomitant]
  5. LIPITOR [Concomitant]
  6. PREVACID [Concomitant]
  7. PROCARDIA [Concomitant]
  8. ELAVIL [Concomitant]
  9. ASPIRIN [Concomitant]

REACTIONS (4)
  - CONDITION AGGRAVATED [None]
  - MALAISE [None]
  - PULMONARY HYPERTENSION [None]
  - SUDDEN DEATH [None]
